FAERS Safety Report 5933154-6 (Version None)
Quarter: 2008Q4

REPORT INFORMATION
  Report Type: 
  Country: None (occurrence: None)
  Receive Date: 20081028
  Receipt Date: 20081020
  Transmission Date: 20090506
  Serious: Yes (Hospitalization, Other)
  Sender: FDA-Public Use
  Company Number: US-CELGENEUS-163-20785-08101287

PATIENT
  Sex: Male

DRUGS (3)
  1. THALOMID [Suspect]
     Indication: MULTIPLE MYELOMA
     Route: 048
     Dates: start: 20080702
  2. THALOMID [Suspect]
     Route: 048
     Dates: start: 20070411, end: 20071001
  3. THALOMID [Suspect]
     Route: 048
     Dates: start: 20070117, end: 20070401

REACTIONS (1)
  - BONE NEOPLASM MALIGNANT [None]
